FAERS Safety Report 14894461 (Version 1)
Quarter: 2018Q2

REPORT INFORMATION
  Report Type: Report from Study
  Country: US (occurrence: US)
  Receive Date: 20180515
  Receipt Date: 20180515
  Transmission Date: 20180711
  Serious: Yes (Hospitalization)
  Sender: FDA-Public Use
  Company Number: US-ROCHE-2121693

PATIENT
  Age: 49 Year
  Sex: Male
  Weight: 96.4 kg

DRUGS (13)
  1. PREDNISONE. [Suspect]
     Active Substance: PREDNISONE
     Indication: DIFFUSE LARGE B-CELL LYMPHOMA
     Dosage: DATE OF MOST RECENT DOSE (60 MG/M2) PRIOR TO EVENT ONSET ON 26/APR/2018 (CYCLE 5 DAY 1).
     Route: 048
     Dates: start: 20180202
  2. RITUXIMAB. [Suspect]
     Active Substance: RITUXIMAB
     Indication: DIFFUSE LARGE B-CELL LYMPHOMA
     Dosage: DATE OF MOST RECENT DOSE PRIOR TO EVENT ONSET ON 26/APR/2018 (CYCLE 5 DAY 1).
     Route: 042
     Dates: start: 20180202
  3. ETOPOSIDE. [Suspect]
     Active Substance: ETOPOSIDE
     Indication: DIFFUSE LARGE B-CELL LYMPHOMA
     Dosage: DATE OF MOST RECENT DOSE (50 MG/M2) PRIOR TO EVENT ONSET ON 26/APR/2018 (CYCLE 5 DAY 1).
     Route: 042
     Dates: start: 20180202
  4. VINCRISTINE SULFATE. [Suspect]
     Active Substance: VINCRISTINE SULFATE
     Indication: DIFFUSE LARGE B-CELL LYMPHOMA
     Dosage: DATE OF MOST RECENT DOSE (0.4 MG/M2) PRIOR TO EVENT ONSET ON 26/APR/2018 (CYCLE 5 DAY 1).
     Route: 042
     Dates: start: 20180202
  5. NEULASTA [Concomitant]
     Active Substance: PEGFILGRASTIM
     Route: 065
     Dates: start: 20180501
  6. VENETOCLAX. [Suspect]
     Active Substance: VENETOCLAX
     Indication: DIFFUSE LARGE B-CELL LYMPHOMA
     Dosage: AS PER PROTOCOL: VENETOCLAX WILL BE ADMINISTERED ORALLY ON DAYS 3-12 IN CYCLE 1, AND DAYS 1-10 WITH
     Route: 048
     Dates: start: 20180202
  7. CYCLOPHOSPHAMIDE. [Suspect]
     Active Substance: CYCLOPHOSPHAMIDE
     Indication: DIFFUSE LARGE B-CELL LYMPHOMA
     Dosage: DATE OF MOST RECENT DOSE (750 MG/M2) PRIOR TO EVENT ONSET ON 26/APR/2018 (CYCLE 5 DAY 1).
     Route: 042
     Dates: start: 20180202
  8. METHOTREXATE. [Concomitant]
     Active Substance: METHOTREXATE
  9. ONDANSETRON [Concomitant]
     Active Substance: ONDANSETRON
     Dosage: ORALLY DISPERSIBLE TABLET
     Route: 048
  10. PROCHLORPERAZINE. [Concomitant]
     Active Substance: PROCHLORPERAZINE
     Route: 042
  11. DOXORUBICIN HYDROCHLORIDE. [Suspect]
     Active Substance: DOXORUBICIN HYDROCHLORIDE
     Indication: DIFFUSE LARGE B-CELL LYMPHOMA
     Dosage: DATE OF MOST RECENT DOSE (10 MG/M2) PRIOR TO EVENT ONSET ON 26/APR/2018 (CYCLE 5 DAY 1).
     Route: 042
     Dates: start: 20180202
  12. GASTROGRAFIN [Concomitant]
     Active Substance: DIATRIZOATE MEGLUMINE\DIATRIZOATE SODIUM
     Route: 048
  13. NORMAL SALINE [Concomitant]
     Active Substance: SODIUM CHLORIDE
     Route: 042

REACTIONS (1)
  - Small intestinal obstruction [Unknown]

NARRATIVE: CASE EVENT DATE: 20180505
